FAERS Safety Report 24436993 (Version 3)
Quarter: 2024Q4

REPORT INFORMATION
  Report Type: Spontaneous
  Country: JP (occurrence: JP)
  Receive Date: 20241015
  Receipt Date: 20241121
  Transmission Date: 20250114
  Serious: Yes (Hospitalization)
  Sender: BAYER HEALTHCARE PHARMACEUTICALS INC.
  Company Number: JP-BAYER-2024A143719

PATIENT
  Age: 22 Year
  Sex: Female

DRUGS (7)
  1. MIRENA [Suspect]
     Active Substance: LEVONORGESTREL
     Indication: Adenomyosis
     Dosage: 20?G/DAY
     Route: 015
  2. MIRENA [Suspect]
     Active Substance: LEVONORGESTREL
     Indication: Endometrial hyperplasia
  3. MIRENA [Suspect]
     Active Substance: LEVONORGESTREL
     Indication: Uterine polyp
  4. DIENOGEST [Suspect]
     Active Substance: DIENOGEST
     Indication: Adenomyosis
     Route: 048
  5. RELUGOLIX [Concomitant]
     Active Substance: RELUGOLIX
     Indication: Adenomyosis
  6. RELUGOLIX [Concomitant]
     Active Substance: RELUGOLIX
     Indication: Endometrial hyperplasia
  7. RELUGOLIX [Concomitant]
     Active Substance: RELUGOLIX
     Indication: Uterine polyp

REACTIONS (3)
  - Genital haemorrhage [None]
  - Shock haemorrhagic [None]
  - Endometrial hyperplasia with cellular atypia [None]
